FAERS Safety Report 7635455-2 (Version None)
Quarter: 2011Q3

REPORT INFORMATION
  Report Type: 
  Country: None (occurrence: None)
  Receive Date: 20110726
  Receipt Date: 20110726
  Transmission Date: 20111222
  Serious: Yes (Other)
  Sender: FDA-Public Use
  Company Number: None

PATIENT
  Age: 62 Year
  Sex: Male
  Weight: 70.306 kg

DRUGS (2)
  1. PEGINTERFERON ALFA-2B [Suspect]
     Indication: HEPATITIS C
     Dosage: .5ML
     Route: 058
     Dates: start: 20110422, end: 20110725
  2. REBETOL -RIBAVIRIN, USP- [Concomitant]
     Indication: HEPATITIS C
     Dosage: 1000MG
     Route: 048
     Dates: start: 20110422, end: 20110725

REACTIONS (1)
  - WEIGHT DECREASED [None]
